FAERS Safety Report 12565232 (Version 1)
Quarter: 2016Q3

REPORT INFORMATION
  Report Type: Spontaneous
  Country: US (occurrence: US)
  Receive Date: 20160718
  Receipt Date: 20160718
  Transmission Date: 20161109
  Serious: No
  Sender: FDA-Public Use
  Company Number: US-PFIZER INC-2016337507

PATIENT
  Sex: Male

DRUGS (1)
  1. XALATAN [Suspect]
     Active Substance: LATANOPROST
     Dosage: UNK

REACTIONS (4)
  - Condition aggravated [Unknown]
  - General physical health deterioration [Unknown]
  - Eye disorder [Unknown]
  - Vitreous floaters [Unknown]
